FAERS Safety Report 9059778 (Version 1)
Quarter: 2013Q1

REPORT INFORMATION
  Report Type: Spontaneous
  Country: US (occurrence: US)
  Receive Date: 20130212
  Receipt Date: 20130212
  Transmission Date: 20140127
  Serious: Yes (Other)
  Sender: FDA-Public Use
  Company Number: US-JNJFOC-20130117170

PATIENT
  Sex: Male
  Weight: 52.16 kg

DRUGS (3)
  1. CONCERTA [Suspect]
     Indication: ATTENTION DEFICIT/HYPERACTIVITY DISORDER
     Route: 048
     Dates: start: 2011
  2. PROZAC [Concomitant]
     Indication: ANXIETY
     Route: 048
     Dates: start: 2012
  3. PROZAC [Concomitant]
     Indication: DEPRESSION
     Route: 048
     Dates: start: 2012

REACTIONS (2)
  - Hand fracture [Not Recovered/Not Resolved]
  - Cyst [Not Recovered/Not Resolved]
